FAERS Safety Report 17666525 (Version 1)
Quarter: 2020Q2

REPORT INFORMATION
  Report Type: Spontaneous
  Country: US (occurrence: US)
  Receive Date: 20200414
  Receipt Date: 20200414
  Transmission Date: 20200713
  Serious: No
  Sender: FDA-Public Use
  Company Number: US-CORCEPT THERAPEUTICS INC.-US-2019CRT000749

PATIENT
  Sex: Female
  Weight: 158.73 kg

DRUGS (11)
  1. KORLYM [Suspect]
     Active Substance: MIFEPRISTONE
     Indication: PITUITARY-DEPENDENT CUSHING^S SYNDROME
     Dosage: 300 MG, QD
     Route: 048
     Dates: start: 20190805, end: 20190818
  2. LISINOPRIL. [Concomitant]
     Active Substance: LISINOPRIL
     Indication: PRODUCT USED FOR UNKNOWN INDICATION
     Dosage: UNK
     Dates: end: 2019
  3. KORLYM [Suspect]
     Active Substance: MIFEPRISTONE
     Dosage: 900 MG QD
     Route: 048
     Dates: start: 20191004, end: 20191110
  4. KORLYM [Suspect]
     Active Substance: MIFEPRISTONE
     Dosage: 600 MG, QD
     Route: 048
  5. VICTOZA [Concomitant]
     Active Substance: LIRAGLUTIDE
     Indication: PRODUCT USED FOR UNKNOWN INDICATION
     Dosage: UNK
  6. SPIRONOLACTONE. [Suspect]
     Active Substance: SPIRONOLACTONE
     Indication: PRODUCT USED FOR UNKNOWN INDICATION
     Dosage: UNK
  7. KORLYM [Suspect]
     Active Substance: MIFEPRISTONE
     Dosage: 600 MG, QD
     Route: 048
     Dates: start: 20190819, end: 20191003
  8. FIASP [Concomitant]
     Active Substance: INSULIN ASPART
     Indication: PRODUCT USED FOR UNKNOWN INDICATION
     Dosage: UNK
  9. TOUJEO [Concomitant]
     Active Substance: INSULIN GLARGINE
     Indication: PRODUCT USED FOR UNKNOWN INDICATION
     Dosage: UNK
  10. KORLYM [Suspect]
     Active Substance: MIFEPRISTONE
     Dosage: 1200 MG, QD
     Route: 048
     Dates: start: 20191111
  11. LEVOTHYROXINE. [Concomitant]
     Active Substance: LEVOTHYROXINE
     Indication: PRODUCT USED FOR UNKNOWN INDICATION
     Dosage: UNK

REACTIONS (24)
  - Musculoskeletal pain [Not Recovered/Not Resolved]
  - Pain [Unknown]
  - Neck pain [Not Recovered/Not Resolved]
  - Sneezing [Unknown]
  - Pruritus [Recovering/Resolving]
  - Fatigue [Recovered/Resolved]
  - Tooth infection [Recovered/Resolved]
  - Blood glucose increased [Unknown]
  - Stress [Unknown]
  - Dizziness [Recovered/Resolved]
  - Internal haemorrhage [Recovered/Resolved]
  - Sleep terror [Unknown]
  - Feeling hot [Recovering/Resolving]
  - Nervousness [Not Recovered/Not Resolved]
  - Erythema [Unknown]
  - Headache [Recovered/Resolved]
  - Hypotension [Unknown]
  - Hyperhidrosis [Not Recovered/Not Resolved]
  - Hypertension [Unknown]
  - Arrhythmia [Recovered/Resolved]
  - Alopecia [Unknown]
  - Blood thyroid stimulating hormone abnormal [Unknown]
  - Oedema peripheral [Recovered/Resolved]
  - Nausea [Unknown]

NARRATIVE: CASE EVENT DATE: 2019
